FAERS Safety Report 12899983 (Version 2)
Quarter: 2016Q4

REPORT INFORMATION
  Report Type: Spontaneous
  Country: US (occurrence: US)
  Receive Date: 20161101
  Receipt Date: 20161104
  Transmission Date: 20170207
  Serious: Yes (Other)
  Sender: FDA-Public Use
  Company Number: US-PFIZER INC-2016503580

PATIENT
  Age: 55 Year
  Sex: Female
  Weight: 130.7 kg

DRUGS (19)
  1. IBRANCE [Suspect]
     Active Substance: PALBOCICLIB
     Indication: HER-2 POSITIVE BREAST CANCER
     Dosage: 125 MG, CYCLIC [1 CAP DAILY X 21 DAYS ON, THEN 7 DAYS OFF THEN REPEAT]
     Route: 048
     Dates: start: 201510
  2. LACTOBACILLUS RHAMNOSUS GG [Concomitant]
     Dosage: 1 DF, 2X/DAY (HOLD IF WBCS{2.5 OR ANC{1.0)
     Route: 048
     Dates: start: 20160325
  3. CENTRUM WOMEN 50+ [Concomitant]
     Dosage: 1 DF, DAILY
  4. VITAMIN D3 [Concomitant]
     Active Substance: CHOLECALCIFEROL
     Dosage: 5000 IU, 2X/DAY
     Dates: start: 20150604
  5. CALCIUM/MELATONIN/PYRIDOXINE HYDROCHLORIDE [Concomitant]
     Indication: IMMUNE SYSTEM DISORDER
     Dosage: 20 MG, 1X/DAY
     Route: 048
     Dates: start: 20140130
  6. ELTROXIN [Concomitant]
     Active Substance: LEVOTHYROXINE
     Dosage: 50 UG, 1X/DAY
     Route: 048
     Dates: start: 20160603
  7. LEXAPRO [Concomitant]
     Active Substance: ESCITALOPRAM OXALATE
     Dosage: 20 MG, 1X/DAY
     Route: 048
     Dates: start: 20160520
  8. COENZYME Q10 [Concomitant]
     Active Substance: UBIDECARENONE
     Indication: SUPPLEMENTATION THERAPY
     Dosage: 200 MG, 2X/DAY
     Dates: start: 20160817
  9. AMBIEN [Concomitant]
     Active Substance: ZOLPIDEM TARTRATE
     Dosage: 5 MG, 1X/DAY (AT BEDTIME)
     Route: 048
     Dates: start: 20160520
  10. ACETYL L-CARNITINE [Concomitant]
     Active Substance: ACETYLCARNITINE
     Indication: NUTRITIONAL SUPPLEMENTATION
     Dosage: 1000 MG, 2X/DAY
     Route: 048
     Dates: start: 20150305
  11. IBRANCE [Suspect]
     Active Substance: PALBOCICLIB
     Dosage: 125 MG, CYCLIC [1 CAP DAILY X 21 DAYS ON, THEN 7 DAYS OFF THEN REPEAT]
     Route: 048
     Dates: start: 20160520
  12. WHEY PROTEIN POWDER [Concomitant]
     Indication: SUPPLEMENTATION THERAPY
     Dosage: DAILY (1-2 SCOOPS PER DAY)
     Dates: start: 20160520
  13. THYROXIN [Concomitant]
     Active Substance: LEVOTHYROXINE
     Indication: THYROID DISORDER
     Dosage: 1 DF, 3X/DAY
     Route: 048
     Dates: start: 20150723
  14. CALCIUM/MELATONIN/PYRIDOXINE HYDROCHLORIDE [Concomitant]
     Indication: SLEEP DISORDER
  15. SHARK LIVER OIL [Concomitant]
     Active Substance: SHARK LIVER OIL
     Indication: PLATELET DISORDER
     Dosage: 1 DF, 2X/DAY
  16. FEMARA [Concomitant]
     Active Substance: LETROZOLE
     Dosage: 2.5 MG, 1X/DAY
     Route: 048
     Dates: start: 20160330
  17. BIOTIN 8 [Concomitant]
     Indication: SUPPLEMENTATION THERAPY
     Dosage: 8000 UG, DAILY
     Dates: start: 20131209
  18. KIRKLAND SIGNATURE FISH OIL [Concomitant]
     Dosage: 1 DF, DAILY
  19. LEXAPRO [Concomitant]
     Active Substance: ESCITALOPRAM OXALATE
     Dosage: 20 MG, 1X/DAY
     Route: 048
     Dates: start: 20160629

REACTIONS (3)
  - Pancytopenia [Unknown]
  - Product use issue [Unknown]
  - Fatigue [Unknown]
